FAERS Safety Report 16536155 (Version 2)
Quarter: 2019Q3

REPORT INFORMATION
  Report Type: Spontaneous
  Country: AR (occurrence: AR)
  Receive Date: 20190705
  Receipt Date: 20190712
  Transmission Date: 20191004
  Serious: Yes (Other)
  Sender: FDA-Public Use
  Company Number: PHHY2019AR155103

PATIENT
  Age: 7 Year
  Sex: Female

DRUGS (2)
  1. OXCARBAZEPINE. [Suspect]
     Active Substance: OXCARBAZEPINE
     Indication: PARTIAL SEIZURES
     Dosage: 30 MG/KG, QD
     Route: 065
  2. VALPROATE SODIUM. [Suspect]
     Active Substance: VALPROATE SODIUM
     Indication: PARTIAL SEIZURES
     Dosage: 750 MG/KG, QD
     Route: 065

REACTIONS (5)
  - Rasmussen encephalitis [Recovered/Resolved]
  - Drug ineffective [Unknown]
  - Partial seizures [Recovered/Resolved]
  - Loss of consciousness [Unknown]
  - Petit mal epilepsy [Recovered/Resolved]
